FAERS Safety Report 10086618 (Version 4)
Quarter: 2014Q2

REPORT INFORMATION
  Report Type: Report from Study
  Country: US (occurrence: US)
  Receive Date: 20140418
  Receipt Date: 20140618
  Transmission Date: 20141212
  Serious: Yes (Death, Hospitalization)
  Sender: FDA-Public Use
  Company Number: US-ACTELION-A-NJ2011-44111

PATIENT
  Age: 53 Year
  Sex: Male

DRUGS (5)
  1. TRACLEER [Suspect]
     Indication: PULMONARY ARTERIAL HYPERTENSION
     Dosage: UNK
     Route: 048
     Dates: start: 2014, end: 20140605
  2. TRACLEER [Suspect]
     Dosage: UNK
     Route: 048
     Dates: start: 200505
  3. METOLAZONE [Concomitant]
  4. ADCIRCA [Concomitant]
  5. COUMADIN [Concomitant]

REACTIONS (11)
  - Death [Fatal]
  - Heart rate irregular [Unknown]
  - Cardiac ablation [Unknown]
  - Cardiac failure [Unknown]
  - Fluid overload [Unknown]
  - Dyspnoea [Unknown]
  - Renal failure [Unknown]
  - Hypotension [Unknown]
  - Ascites [Unknown]
  - Pleural effusion [Unknown]
  - Oedema [Unknown]
